FAERS Safety Report 11048974 (Version 1)
Quarter: 2015Q2

REPORT INFORMATION
  Report Type: Spontaneous
  Country: US (occurrence: US)
  Receive Date: 20150420
  Receipt Date: 20150420
  Transmission Date: 20150821
  Serious: No
  Sender: FDA-Public Use
  Company Number: US-MYLANLABS-2015M1002465

PATIENT
  Age: 62 Year
  Sex: Female

DRUGS (2)
  1. ESZOPICLONE. [Suspect]
     Active Substance: ESZOPICLONE
     Dosage: 12 MG, UNK
  2. ESZOPICLONE. [Suspect]
     Active Substance: ESZOPICLONE
     Dosage: 6 MG, UNK
     Route: 048
     Dates: start: 201401

REACTIONS (1)
  - Drug ineffective [Not Recovered/Not Resolved]
